FAERS Safety Report 17782580 (Version 1)
Quarter: 2020Q2

REPORT INFORMATION
  Report Type: Spontaneous
  Country: HR (occurrence: HR)
  Receive Date: 20200514
  Receipt Date: 20200514
  Transmission Date: 20200714
  Serious: Yes (Other)
  Sender: FDA-Public Use
  Company Number: HR-BAUSCH-BL-2020-013912

PATIENT
  Age: 51 Year
  Sex: Female

DRUGS (1)
  1. DICLO DUO [Suspect]
     Active Substance: DICLOFENAC SODIUM
     Indication: PRODUCT USED FOR UNKNOWN INDICATION
     Dosage: TOOK 2 BLISTER PACKS
     Route: 048
     Dates: start: 20200403, end: 20200403

REACTIONS (3)
  - Suicide attempt [Unknown]
  - Crying [Unknown]
  - Intentional overdose [Unknown]

NARRATIVE: CASE EVENT DATE: 20200403
